FAERS Safety Report 11286399 (Version 1)
Quarter: 2015Q3

REPORT INFORMATION
  Report Type: Spontaneous
  Country: US (occurrence: US)
  Receive Date: 20150721
  Receipt Date: 20150721
  Transmission Date: 20151125
  Serious: No
  Sender: FDA-Public Use
  Company Number: US-UNITED THERAPEUTICS-UNT-2014-012539

PATIENT
  Age: 44 Year
  Sex: Female
  Weight: 54.47 kg

DRUGS (1)
  1. TYVASO [Suspect]
     Active Substance: TREPROSTINIL
     Indication: PULMONARY HYPERTENSION
     Dosage: 18-54 MICROGRAMS, QID
     Dates: start: 20141208

REACTIONS (6)
  - Flushing [Not Recovered/Not Resolved]
  - Influenza [Unknown]
  - Cough [Not Recovered/Not Resolved]
  - Nausea [Unknown]
  - Throat irritation [Not Recovered/Not Resolved]
  - Oropharyngeal pain [Unknown]

NARRATIVE: CASE EVENT DATE: 201412
